FAERS Safety Report 18180879 (Version 1)
Quarter: 2020Q3

REPORT INFORMATION
  Report Type: Spontaneous
  Country: US (occurrence: US)
  Receive Date: 20200821
  Receipt Date: 20200821
  Transmission Date: 20201103
  Serious: No
  Sender: FDA-Public Use
  Company Number: None

PATIENT
  Age: 65 Year
  Sex: Male

DRUGS (1)
  1. AMBRISENTAN [Suspect]
     Active Substance: AMBRISENTAN
     Route: 048

REACTIONS (6)
  - Headache [None]
  - Dyspnoea [None]
  - Feeling hot [None]
  - Flushing [None]
  - Asthenia [None]
  - Abnormal weight gain [None]

NARRATIVE: CASE EVENT DATE: 20200821
